FAERS Safety Report 17361986 (Version 2)
Quarter: 2020Q2

REPORT INFORMATION
  Report Type: Spontaneous
  Country: US (occurrence: US)
  Receive Date: 20200203
  Receipt Date: 20200408
  Transmission Date: 20200713
  Serious: Yes (Hospitalization, Other)
  Sender: FDA-Public Use
  Company Number: US-PFIZER INC-2020045985

PATIENT
  Age: 51 Year
  Sex: Female

DRUGS (5)
  1. TRAZONE [Concomitant]
     Dosage: UNK
  2. GLIZIDE [GLICLAZIDE] [Concomitant]
     Dosage: 10 OR 20 MG 1 DAILY
  3. HYDROXYZINE [Concomitant]
     Active Substance: HYDROXYZINE HYDROCHLORIDE
     Dosage: 1 PILL 4X/DAY
  4. LYRICA [Suspect]
     Active Substance: PREGABALIN
     Indication: DIABETIC NEPHROPATHY
     Dosage: UNK, 3X/DAY
  5. KLOPIN [Concomitant]
     Dosage: UNK

REACTIONS (6)
  - Gait disturbance [Not Recovered/Not Resolved]
  - Stress [Unknown]
  - Diabetes mellitus [Not Recovered/Not Resolved]
  - Arthropathy [Unknown]
  - Cognitive disorder [Unknown]
  - Drug ineffective [Unknown]
